FAERS Safety Report 19144027 (Version 1)
Quarter: 2021Q2

REPORT INFORMATION
  Report Type: Spontaneous
  Country: US (occurrence: US)
  Receive Date: 20210416
  Receipt Date: 20210416
  Transmission Date: 20210717
  Serious: Yes (Death, Other)
  Sender: FDA-Public Use
  Company Number: US-CADILA HEALTHCARE LIMITED-US-ZYDUS-064761

PATIENT

DRUGS (1)
  1. RANITIDINE. [Suspect]
     Active Substance: RANITIDINE
     Indication: PRODUCT USED FOR UNKNOWN INDICATION
     Dosage: UNK
     Route: 065
     Dates: start: 200101, end: 201808

REACTIONS (9)
  - Lung neoplasm malignant [Unknown]
  - Throat cancer [Unknown]
  - Hepatic cancer [Unknown]
  - Death [Fatal]
  - Nasal cavity cancer [Unknown]
  - Bone cancer [Unknown]
  - Brain cancer metastatic [Unknown]
  - Gastric cancer [Unknown]
  - Oesophageal carcinoma [Unknown]

NARRATIVE: CASE EVENT DATE: 201811
